FAERS Safety Report 7289182-4 (Version None)
Quarter: 2011Q1

REPORT INFORMATION
  Report Type: 
  Country: None (occurrence: None)
  Receive Date: 20110211
  Receipt Date: 20110209
  Transmission Date: 20110831
  Serious: Yes (Hospitalization)
  Sender: FDA-Public Use
  Company Number: US-B.I. PHARMACEUTICALS,INC./RIDGEFIELD-2011-BP-02440BP

PATIENT
  Sex: Male

DRUGS (1)
  1. PRADAXA [Suspect]
     Route: 048

REACTIONS (4)
  - MELAENA [None]
  - INTERNATIONAL NORMALISED RATIO INCREASED [None]
  - HYPOTENSION [None]
  - HAEMATOCRIT DECREASED [None]
